FAERS Safety Report 9942263 (Version 2)
Quarter: 2014Q2

REPORT INFORMATION
  Report Type: Spontaneous
  Country: US (occurrence: US)
  Receive Date: 20140303
  Receipt Date: 20140425
  Transmission Date: 20141212
  Serious: Yes (Death, Other)
  Sender: FDA-Public Use
  Company Number: US-GILEAD-2014-0095812

PATIENT
  Age: 78 Year
  Sex: Female

DRUGS (15)
  1. LETAIRIS [Suspect]
     Indication: PULMONARY ARTERIAL HYPERTENSION
     Dosage: 10 MG, QD
     Route: 065
     Dates: start: 20130628
  2. ADCIRCA [Concomitant]
  3. DIOVAN [Concomitant]
  4. SIMVASTATIN [Concomitant]
  5. POTASSIUM CHLORIDE [Concomitant]
  6. DILTIAZEM [Concomitant]
  7. DOXAZOSIN MESYLATE [Concomitant]
  8. ADVAIR [Concomitant]
  9. MUCINEX [Concomitant]
  10. SPIRIVA [Concomitant]
  11. ALBUTEROL HFA [Concomitant]
  12. PREDNISONE [Concomitant]
  13. VITAMIN D3 [Concomitant]
  14. VITAMIN C                          /00008001/ [Concomitant]
  15. TORSEMIDE [Concomitant]

REACTIONS (1)
  - Pulmonary hypertension [Fatal]
